FAERS Safety Report 8334414-4 (Version None)
Quarter: 2012Q2

REPORT INFORMATION
  Report Type: 
  Country: None (occurrence: None)
  Receive Date: 20120503
  Receipt Date: 20110324
  Transmission Date: 20120825
  Serious: No
  Sender: FDA-Public Use
  Company Number: US-BAUSCH-2011BL001892

PATIENT
  Age: 83 Year
  Sex: Male

DRUGS (8)
  1. TEMAZEPAM [Concomitant]
     Indication: SLEEP DISORDER
     Route: 048
     Dates: start: 20090101
  2. CITALOPRAM HYDROBROMIDE [Concomitant]
     Indication: DEPRESSION
     Route: 048
     Dates: start: 20070101
  3. LIPITOR [Concomitant]
     Indication: BLOOD CHOLESTEROL INCREASED
     Route: 048
  4. ACYCLOVIR [Concomitant]
     Indication: HERPES OPHTHALMIC
     Route: 048
  5. ARICEPT /JPN/ [Concomitant]
     Indication: DEMENTIA
     Route: 048
     Dates: start: 20090101
  6. VITAMIN D [Concomitant]
  7. LOTEMAX [Suspect]
     Indication: HERPES OPHTHALMIC
     Route: 047
     Dates: start: 20050101, end: 20110101
  8. MULTI-VITAMINS [Concomitant]

REACTIONS (1)
  - DYSPNOEA [None]
